FAERS Safety Report 21065829 (Version 1)
Quarter: 2022Q3

REPORT INFORMATION
  Report Type: Spontaneous
  Country: DE (occurrence: DE)
  Receive Date: 20220711
  Receipt Date: 20220711
  Transmission Date: 20221027
  Serious: Yes (Other)
  Sender: FDA-Public Use
  Company Number: DE-PFIZER INC-PV202200017037

PATIENT
  Age: 41 Year
  Sex: Female
  Weight: 78 kg

DRUGS (1)
  1. CYTOTEC [Suspect]
     Active Substance: MISOPROSTOL
     Indication: Labour induction
     Dosage: 1 DF, SINGLE
     Dates: start: 202007, end: 202007

REACTIONS (9)
  - Vaginal haemorrhage [Recovered/Resolved]
  - Uterine tachysystole [Recovered/Resolved]
  - Haemoglobin decreased [Unknown]
  - Multiple sclerosis [Not Recovered/Not Resolved]
  - Labour pain [Recovered/Resolved]
  - Psychological trauma [Not Recovered/Not Resolved]
  - Scar pain [Not Recovered/Not Resolved]
  - Sinus tachycardia [Unknown]
  - Off label use [Unknown]

NARRATIVE: CASE EVENT DATE: 20200701
